FAERS Safety Report 15865685 (Version 1)
Quarter: 2019Q1

REPORT INFORMATION
  Report Type: Spontaneous
  Country: US (occurrence: US)
  Receive Date: 20190125
  Receipt Date: 20190125
  Transmission Date: 20190417
  Serious: No
  Sender: FDA-Public Use
  Company Number: US-DSJP-DSU-2017-150605

PATIENT

DRUGS (2)
  1. BENICAR [Suspect]
     Active Substance: OLMESARTAN MEDOXOMIL
     Indication: HYPERTENSION
     Dosage: 20 MG, QD
     Route: 048
     Dates: start: 20101013, end: 20121211
  2. BENICAR [Suspect]
     Active Substance: OLMESARTAN MEDOXOMIL
     Dosage: 20 MG, 1/2 TABLET, UNK
     Dates: end: 20121211

REACTIONS (4)
  - Depression [Unknown]
  - Sprue-like enteropathy [Recovered/Resolved]
  - Product administration error [Unknown]
  - Anxiety [Unknown]

NARRATIVE: CASE EVENT DATE: 201101
